FAERS Safety Report 4596491-6 (Version None)
Quarter: 2005Q1

REPORT INFORMATION
  Report Type: 
  Country: None (occurrence: None)
  Receive Date: 20050228
  Receipt Date: 20040730
  Transmission Date: 20050727
  Serious: Yes (Life-Threatening, Hospitalization, Disabling)
  Sender: FDA-Public Use
  Company Number: 8578

PATIENT
  Sex: Female

DRUGS (3)
  1. METHOTREXATE [Suspect]
     Indication: ARTHRITIS
     Dosage: 10 MG WEEKLY, PO
     Route: 048
     Dates: start: 19990101, end: 20040709
  2. ROFECOXIB [Suspect]
     Indication: ARTHRITIS
     Dosage: 12.5 MG PO
     Route: 048
     Dates: start: 20030701, end: 20040709
  3. FOLIC ACID [Concomitant]

REACTIONS (8)
  - ANOREXIA [None]
  - BALANCE DISORDER [None]
  - DIZZINESS [None]
  - DRUG INTERACTION [None]
  - DRUG TOXICITY [None]
  - EPISTAXIS [None]
  - MALAISE [None]
  - SYNCOPE [None]
